FAERS Safety Report 10338015 (Version 1)
Quarter: 2014Q3

REPORT INFORMATION
  Report Type: Spontaneous
  Country: US (occurrence: None)
  Receive Date: 20140722
  Receipt Date: 20140722
  Transmission Date: 20150326
  Serious: Yes (Hospitalization)
  Sender: FDA-Public Use
  Company Number: 2014STPI000305

PATIENT
  Age: 28 Year
  Sex: Female
  Weight: 49.8 kg

DRUGS (2)
  1. PROCYSBI (CYSTEAMINE) [Concomitant]
  2. CYSTARAN [Suspect]
     Active Substance: CYSTEAMINE HYDROCHLORIDE
     Indication: CORNEAL DEPOSITS
     Route: 047
     Dates: start: 20130713

REACTIONS (2)
  - Burns third degree [None]
  - Skin graft [None]

NARRATIVE: CASE EVENT DATE: 201405
